FAERS Safety Report 9828642 (Version 2)
Quarter: 2014Q1

REPORT INFORMATION
  Report Type: Report from Study
  Country: US (occurrence: US)
  Receive Date: 20140117
  Receipt Date: 20140211
  Transmission Date: 20141002
  Serious: Yes (Hospitalization)
  Sender: FDA-Public Use
  Company Number: US-US-EMD SERONO, INC.-7262672

PATIENT
  Age: 55 Year
  Sex: Male

DRUGS (1)
  1. REBIF [Suspect]
     Indication: PRODUCT USED FOR UNKNOWN INDICATION
     Route: 058
     Dates: start: 20101007

REACTIONS (5)
  - Multi-organ failure [Recovering/Resolving]
  - Sepsis [Recovering/Resolving]
  - Dehydration [Recovering/Resolving]
  - Heart rate irregular [Recovering/Resolving]
  - Abnormal behaviour [Recovering/Resolving]
